FAERS Safety Report 4515684-7 (Version None)
Quarter: 2004Q4

REPORT INFORMATION
  Report Type: 
  Country: None (occurrence: None)
  Receive Date: 20041201
  Receipt Date: 20041022
  Transmission Date: 20050328
  Serious: Yes (Hospitalization)
  Sender: FDA-Public Use
  Company Number: DE-MERCK-0410DEU00690

PATIENT
  Age: 65 Year
  Sex: Female

DRUGS (2)
  1. VIOXX [Suspect]
     Indication: CERVICOBRACHIAL SYNDROME
     Route: 048
     Dates: start: 19991216, end: 20020101
  2. VIOXX [Suspect]
     Route: 048
     Dates: start: 20020101, end: 20041001

REACTIONS (37)
  - ALOPECIA [None]
  - ANGINA PECTORIS [None]
  - ANXIETY [None]
  - ARRHYTHMIA [None]
  - BALANCE DISORDER [None]
  - BLADDER PAIN [None]
  - COUGH [None]
  - CYSTITIS [None]
  - CYSTITIS NONINFECTIVE [None]
  - DERMATITIS ALLERGIC [None]
  - DIZZINESS [None]
  - DUODENAL ULCER [None]
  - DYSPEPSIA [None]
  - FALL [None]
  - GASTRIC DISORDER [None]
  - GASTRIC PH DECREASED [None]
  - GASTRIC ULCER [None]
  - HAEMATURIA [None]
  - HEADACHE [None]
  - HELICOBACTER GASTRITIS [None]
  - HYPERSENSITIVITY [None]
  - HYPERTONIC BLADDER [None]
  - INCONTINENCE [None]
  - INTESTINAL HAEMORRHAGE [None]
  - INTESTINAL POLYP [None]
  - IRRITABLE BOWEL SYNDROME [None]
  - KNEE DEFORMITY [None]
  - LIGAMENT SPRAIN [None]
  - LOCALISED OSTEOARTHRITIS [None]
  - PAIN [None]
  - PAIN IN EXTREMITY [None]
  - PALPITATIONS [None]
  - REFLUX OESOPHAGITIS [None]
  - RENAL PAIN [None]
  - TINNITUS [None]
  - URINARY INCONTINENCE [None]
  - VENTRICULAR FIBRILLATION [None]
